FAERS Safety Report 11809887 (Version 1)
Quarter: 2015Q4

REPORT INFORMATION
  Report Type: Report from Study
  Country: US (occurrence: US)
  Receive Date: 20151208
  Receipt Date: 20151208
  Transmission Date: 20160305
  Serious: Yes (Other)
  Sender: FDA-Public Use
  Company Number: US-BRISTOL-MYERS SQUIBB COMPANY-12875852

PATIENT
  Age: 17 Year
  Sex: Female

DRUGS (1)
  1. EFAVIRENZ [Suspect]
     Active Substance: EFAVIRENZ
     Indication: HIV INFECTION
     Dosage: 600 MG, QD
     Route: 048
     Dates: start: 20010126, end: 20040610

REACTIONS (4)
  - Premature delivery [Unknown]
  - Pregnancy [Recovered/Resolved]
  - Live birth [Unknown]
  - Pre-eclampsia [Unknown]

NARRATIVE: CASE EVENT DATE: 20041221
